FAERS Safety Report 20532944 (Version 1)
Quarter: 2022Q1

REPORT INFORMATION
  Report Type: Report from Study
  Country: BR (occurrence: BR)
  Receive Date: 20220301
  Receipt Date: 20220301
  Transmission Date: 20220423
  Serious: Yes (Death)
  Sender: FDA-Public Use
  Company Number: BR-NOVARTISPH-PHHY2018BR058152

PATIENT
  Age: 34 Year
  Sex: Male
  Weight: 80 kg

DRUGS (1)
  1. COSENTYX [Suspect]
     Active Substance: SECUKINUMAB
     Indication: Psoriatic arthropathy
     Dosage: 300 MG, UNK
     Route: 058
     Dates: start: 20171019

REACTIONS (8)
  - Liver disorder [Fatal]
  - Anaemia [Fatal]
  - Rash [Recovered/Resolved]
  - Limb injury [Unknown]
  - Furuncle [Unknown]
  - Pain [Recovered/Resolved]
  - Skin lesion [Not Recovered/Not Resolved]
  - Drug ineffective [Unknown]

NARRATIVE: CASE EVENT DATE: 20180201
